FAERS Safety Report 24621485 (Version 1)
Quarter: 2024Q4

REPORT INFORMATION
  Report Type: Spontaneous
  Country: FR (occurrence: FR)
  Receive Date: 20241114
  Receipt Date: 20241114
  Transmission Date: 20250115
  Serious: Yes (Other)
  Sender: TEVA
  Company Number: None

PATIENT
  Age: 69 Year
  Sex: Male

DRUGS (1)
  1. SORAFENIB [Suspect]
     Active Substance: SORAFENIB
     Indication: Acute myeloid leukaemia
     Dosage: SORAFENIB (TOSILATE DE)
     Route: 048
     Dates: start: 20230330, end: 20241001

REACTIONS (1)
  - Keratoacanthoma [Recovering/Resolving]

NARRATIVE: CASE EVENT DATE: 20240601
